FAERS Safety Report 9457806 (Version 1)
Quarter: 2013Q3

REPORT INFORMATION
  Report Type: Spontaneous
  Country: RS (occurrence: RS)
  Receive Date: 20130814
  Receipt Date: 20130814
  Transmission Date: 20140515
  Serious: Yes (Other)
  Sender: FDA-Public Use
  Company Number: PHHY2013RS087195

PATIENT
  Sex: Male

DRUGS (2)
  1. TEGRETOL CR [Suspect]
  2. BENSEDIN [Concomitant]

REACTIONS (1)
  - Epilepsy [Unknown]
